FAERS Safety Report 7085463-8 (Version None)
Quarter: 2010Q4

REPORT INFORMATION
  Report Type: 
  Country: None (occurrence: None)
  Receive Date: 20101105
  Receipt Date: 20101028
  Transmission Date: 20110411
  Serious: Yes (Death)
  Sender: FDA-Public Use
  Company Number: GB-MEDIMMUNE-MEDI-0011697

PATIENT

DRUGS (1)
  1. SYNAGIS [Suspect]
     Dates: start: 20101014, end: 20101014

REACTIONS (1)
  - INTESTINAL OBSTRUCTION [None]
